FAERS Safety Report 9909679 (Version 3)
Quarter: 2014Q1

REPORT INFORMATION
  Report Type: Spontaneous
  Country: FI (occurrence: FI)
  Receive Date: 20140219
  Receipt Date: 20140228
  Transmission Date: 20141002
  Serious: Yes (Other)
  Sender: FDA-Public Use
  Company Number: FI-UCBSA-095803

PATIENT
  Sex: Female

DRUGS (7)
  1. CIMZIA [Suspect]
     Indication: RHEUMATOID ARTHRITIS
     Dosage: DRUG STRENGTH:200 MG
     Route: 058
     Dates: start: 20130520, end: 20130731
  2. CIMZIA [Suspect]
     Indication: RHEUMATOID ARTHRITIS
     Dosage: DRUG RESTARTED, PATIENT HAS INJECTED TWO INJECTIONS AFTER THE INTERRUPTION
     Route: 058
     Dates: start: 2013, end: 201401
  3. PREDNISOLON [Suspect]
     Indication: RHEUMATOID ARTHRITIS
     Dosage: 5 MG, EVERY SECOND DAY
     Route: 048
     Dates: end: 201401
  4. METOJECT [Suspect]
     Indication: RHEUMATOID ARTHRITIS
     Dosage: WEEKLY TUESDAYS, ROUTE INJECTION
     Dates: end: 201401
  5. THYROXIN [Concomitant]
     Indication: HYPOTHYROIDISM
     Route: 048
  6. ATORVASTATIN [Concomitant]
     Indication: BLOOD CHOLESTEROL INCREASED
     Route: 048
  7. PANADOL [Concomitant]
     Indication: PAIN
     Dosage: UNKNOWN DOSE, ONCE DAILY
     Route: 048

REACTIONS (10)
  - Retinal tear [Recovered/Resolved]
  - Fatigue [Unknown]
  - Headache [Unknown]
  - Dizziness [Unknown]
  - Photophobia [Not Recovered/Not Resolved]
  - Upper respiratory tract inflammation [Unknown]
  - Oropharyngeal pain [Not Recovered/Not Resolved]
  - Eye irritation [Not Recovered/Not Resolved]
  - Dry eye [Not Recovered/Not Resolved]
  - Cough [Not Recovered/Not Resolved]
